FAERS Safety Report 9855199 (Version 4)
Quarter: 2016Q3

REPORT INFORMATION
  Report Type: Spontaneous
  Country: US (occurrence: US)
  Receive Date: 20140130
  Receipt Date: 20160826
  Transmission Date: 20161109
  Serious: Yes (Life-Threatening, Hospitalization)
  Sender: FDA-Public Use
  Company Number: US-BAYER-2014-013379

PATIENT
  Age: 36 Year
  Sex: Female
  Weight: 160.54 kg

DRUGS (4)
  1. MIRENA [Suspect]
     Active Substance: LEVONORGESTREL
     Indication: CONTRACEPTION
     Dosage: 20 MCG/24HR, CONT
     Route: 015
     Dates: start: 20100422, end: 20110422
  2. PROZAC [Concomitant]
     Active Substance: FLUOXETINE HYDROCHLORIDE
  3. HYDROCHLOROTHIAZIDE. [Concomitant]
     Active Substance: HYDROCHLOROTHIAZIDE
     Indication: HYPERTENSION
  4. CELEXA [Concomitant]
     Active Substance: CITALOPRAM HYDROBROMIDE
     Indication: DEPRESSION

REACTIONS (9)
  - Abdominal pain lower [None]
  - Depression [None]
  - General physical health deterioration [None]
  - Pain [None]
  - Emotional distress [None]
  - Uterine perforation [None]
  - Anhedonia [None]
  - Injury [None]
  - Anxiety [None]

NARRATIVE: CASE EVENT DATE: 20110422
